FAERS Safety Report 22180258 (Version 5)
Quarter: 2023Q4

REPORT INFORMATION
  Report Type: Spontaneous
  Country: US (occurrence: US)
  Receive Date: 20230406
  Receipt Date: 20231228
  Transmission Date: 20240110
  Serious: No
  Sender: FDA-Public Use
  Company Number: US-PFIZER INC-PV202300062266

PATIENT
  Age: 78 Year
  Sex: Male

DRUGS (1)
  1. IBRANCE [Suspect]
     Active Substance: PALBOCICLIB
     Indication: Neoplasm malignant
     Dosage: 1 TABLET DAILY, TAKE ON DAYS 1-21 OFF 7 DAYS EVERY 28 DAYS
     Route: 048

REACTIONS (1)
  - COVID-19 [Unknown]
